FAERS Safety Report 22180649 (Version 1)
Quarter: 2023Q2

REPORT INFORMATION
  Report Type: Spontaneous
  Country: US (occurrence: US)
  Receive Date: 20230406
  Receipt Date: 20230406
  Transmission Date: 20230722
  Serious: No
  Sender: FDA-Public Use
  Company Number: US-ELI_LILLY_AND_COMPANY-US202304000725

PATIENT
  Sex: Male

DRUGS (2)
  1. INSULIN LISPRO [Suspect]
     Active Substance: INSULIN LISPRO
     Indication: Product used for unknown indication
     Dosage: 8 U, TID
     Route: 065
  2. INSULIN LISPRO [Suspect]
     Active Substance: INSULIN LISPRO
     Dosage: 8 U, TID
     Route: 065

REACTIONS (2)
  - Blood glucose increased [Unknown]
  - Incorrect dose administered [Unknown]
